FAERS Safety Report 6760791-1 (Version None)
Quarter: 2010Q2

REPORT INFORMATION
  Report Type: 
  Country: None (occurrence: None)
  Receive Date: 20100608
  Receipt Date: 20100528
  Transmission Date: 20101027
  Serious: Yes (Other)
  Sender: FDA-Public Use
  Company Number: GB-MERCK-1002GBR00037

PATIENT
  Age: 76 Year
  Sex: Male
  Weight: 80 kg

DRUGS (7)
  1. ZOCOR [Suspect]
     Route: 048
  2. ALFUZOSIN HYDROCHLORIDE [Concomitant]
     Route: 048
     Dates: start: 20080101
  3. ALLOPURINOL [Concomitant]
     Route: 048
     Dates: start: 20080101
  4. ASPIRIN [Concomitant]
     Route: 065
     Dates: start: 20080101
  5. ATORVASTATIN CALCIUM [Suspect]
     Indication: ACUTE CORONARY SYNDROME
     Route: 048
     Dates: start: 20091006
  6. BISOPROLOL [Concomitant]
     Route: 048
  7. RAMIPRIL [Concomitant]
     Route: 048

REACTIONS (2)
  - FINGER DEFORMITY [None]
  - TENDON RUPTURE [None]
